FAERS Safety Report 6605068-X (Version None)
Quarter: 2010Q1

REPORT INFORMATION
  Report Type: 
  Country: None (occurrence: None)
  Receive Date: 20100226
  Receipt Date: 20100215
  Transmission Date: 20100710
  Serious: Yes (Other)
  Sender: FDA-Public Use
  Company Number: ES-ELI_LILLY_AND_COMPANY-ES200910006092

PATIENT
  Age: 50 Year
  Sex: Male

DRUGS (6)
  1. BYETTA [Suspect]
     Indication: TYPE 2 DIABETES MELLITUS
     Dosage: 5 UG, UNKNOWN
     Route: 058
     Dates: start: 20090924
  2. ADIRO [Concomitant]
     Dosage: UNK, UNKNOWN
  3. METFORMIN HCL [Concomitant]
     Dosage: UNK, UNKNOWN
  4. CARDYL [Concomitant]
     Dosage: UNK, UNKNOWN
  5. ENALAPRIL MALEATE [Concomitant]
     Dosage: UNK, UNKNOWN
  6. ALLOPURINOL [Concomitant]
     Dosage: UNK, UNKNOWN

REACTIONS (2)
  - DIABETIC KETOACIDOSIS [None]
  - OFF LABEL USE [None]
